FAERS Safety Report 18587274 (Version 1)
Quarter: 2020Q4

REPORT INFORMATION
  Report Type: Spontaneous
  Country: US (occurrence: US)
  Receive Date: 20201207
  Receipt Date: 20201207
  Transmission Date: 20210114
  Serious: Yes (Other)
  Sender: FDA-Public Use
  Company Number: US-TEVA-2020-US-1856324

PATIENT
  Age: 49 Year
  Sex: Male

DRUGS (1)
  1. BUPRENORPHINE. [Suspect]
     Active Substance: BUPRENORPHINE
     Indication: SUICIDAL IDEATION
     Dosage: 8 MILLIGRAM DAILY;
     Route: 065

REACTIONS (5)
  - Drug intolerance [Unknown]
  - Dysphoria [Unknown]
  - Urinary retention [Unknown]
  - Off label use [Unknown]
  - Nausea [Unknown]
